FAERS Safety Report 10240506 (Version 1)
Quarter: 2014Q2

REPORT INFORMATION
  Report Type: Spontaneous
  Country: US (occurrence: US)
  Receive Date: 20140617
  Receipt Date: 20140617
  Transmission Date: 20141212
  Serious: Yes (Other)
  Sender: FDA-Public Use
  Company Number: US-ROCHE-1419556

PATIENT
  Sex: Female

DRUGS (5)
  1. ZELBORAF [Suspect]
     Indication: METASTATIC MALIGNANT MELANOMA
     Route: 048
     Dates: end: 20140615
  2. URELLE [Concomitant]
     Route: 048
  3. TEMAZEPAM [Concomitant]
     Route: 048
  4. HYDROCODONE/APAP [Concomitant]
     Dosage: 5-325 MG
     Route: 048
  5. MODAFINIL [Concomitant]
     Route: 048

REACTIONS (1)
  - Metastasis [Unknown]
